FAERS Safety Report 25975764 (Version 2)
Quarter: 2025Q4

REPORT INFORMATION
  Report Type: Report from Study
  Country: US (occurrence: US)
  Receive Date: 20251029
  Receipt Date: 20251110
  Transmission Date: 20260118
  Serious: Yes (Other)
  Sender: RECORDATI
  Company Number: US-RECORDATI RARE DISEASE INC.-2025007367

PATIENT
  Age: 53 Year
  Sex: Female

DRUGS (2)
  1. PANHEMATIN [Suspect]
     Active Substance: HEMIN
     Indication: Porphyria acute
     Dosage: STARTED OVER 3 YEARS AGO
  2. PANHEMATIN [Suspect]
     Active Substance: HEMIN
     Dosage: UNK
     Dates: start: 20250920, end: 20250920

REACTIONS (2)
  - Anaphylactic shock [Unknown]
  - Infusion related hypersensitivity reaction [Unknown]

NARRATIVE: CASE EVENT DATE: 20250901
